FAERS Safety Report 5598243-7 (Version None)
Quarter: 2008Q1

REPORT INFORMATION
  Report Type: 
  Country: None (occurrence: None)
  Receive Date: 20080117
  Receipt Date: 20080117
  Transmission Date: 20080703
  Serious: Yes (Hospitalization)
  Sender: FDA-Public Use
  Company Number: None

PATIENT
  Age: 32 Year
  Sex: Female
  Weight: 72.5755 kg

DRUGS (2)
  1. RAMELTEON 8MG [Suspect]
  2. TOPIRAMATE [Suspect]

REACTIONS (6)
  - ABNORMAL BEHAVIOUR [None]
  - HEADACHE [None]
  - INDIFFERENCE [None]
  - MEMORY IMPAIRMENT [None]
  - MENTAL STATUS CHANGES [None]
  - THINKING ABNORMAL [None]
